FAERS Safety Report 17337677 (Version 1)
Quarter: 2020Q1

REPORT INFORMATION
  Report Type: Spontaneous
  Country: US (occurrence: US)
  Receive Date: 20200129
  Receipt Date: 20200129
  Transmission Date: 20200409
  Serious: No
  Sender: FDA-Public Use
  Company Number: US-CIPLA LTD.-2019US07771

PATIENT

DRUGS (9)
  1. CYMBALTA [Concomitant]
     Active Substance: DULOXETINE HYDROCHLORIDE
     Indication: FIBROMYALGIA
     Dosage: 30 MILLIGRAM, QD
     Route: 065
  2. ZYRTEC [Concomitant]
     Active Substance: CETIRIZINE HYDROCHLORIDE
     Indication: SEASONAL ALLERGY
     Dosage: UNK
     Route: 065
  3. CYMBALTA [Concomitant]
     Active Substance: DULOXETINE HYDROCHLORIDE
     Dosage: 60 MILLIGRAM, QD
     Route: 065
  4. LATUDA [Concomitant]
     Active Substance: LURASIDONE HYDROCHLORIDE
     Indication: BIPOLAR DISORDER
     Dosage: UNK
     Route: 065
  5. GABAPENTIN. [Suspect]
     Active Substance: GABAPENTIN
     Indication: PAIN
     Dosage: 300 MILLIGRAM, PER DAY, FOR 2 MONTHS
     Route: 048
     Dates: start: 201905
  6. GABAPENTIN. [Suspect]
     Active Substance: GABAPENTIN
     Dosage: 400 MILLIGRAM, TID
     Route: 048
     Dates: start: 2019
  7. GABAPENTIN. [Suspect]
     Active Substance: GABAPENTIN
     Dosage: 400 MILLIGRAM, UNK, FOR 1 MONTH
     Route: 048
     Dates: start: 2019
  8. GABAPENTIN. [Suspect]
     Active Substance: GABAPENTIN
     Dosage: 800 MILLIGRAM, UNK
     Route: 048
     Dates: start: 2019
  9. LAMICTAL [Concomitant]
     Active Substance: LAMOTRIGINE
     Indication: BIPOLAR DISORDER
     Dosage: UNK
     Route: 065

REACTIONS (13)
  - Abdominal distension [Unknown]
  - Fall [Unknown]
  - Coordination abnormal [Not Recovered/Not Resolved]
  - Hypoglycaemia [Unknown]
  - Somnolence [Unknown]
  - Abnormal weight gain [Unknown]
  - Loss of personal independence in daily activities [Unknown]
  - Balance disorder [Unknown]
  - Dehydration [Unknown]
  - Peripheral swelling [Unknown]
  - Diplopia [Not Recovered/Not Resolved]
  - Fatigue [Not Recovered/Not Resolved]
  - Pain [Unknown]

NARRATIVE: CASE EVENT DATE: 2019
